FAERS Safety Report 6097504-5 (Version None)
Quarter: 2009Q1

REPORT INFORMATION
  Report Type: 
  Country: None (occurrence: None)
  Receive Date: 20090227
  Receipt Date: 20080821
  Transmission Date: 20090719
  Serious: Yes (Hospitalization)
  Sender: FDA-Public Use
  Company Number: A0743742A

PATIENT
  Sex: Female

DRUGS (2)
  1. IMITREX [Suspect]
     Indication: MIGRAINE
     Dosage: 12MG AS REQUIRED
     Route: 058
     Dates: start: 20020101
  2. IMITREX [Suspect]
     Route: 048

REACTIONS (2)
  - NAUSEA [None]
  - PALPITATIONS [None]
